FAERS Safety Report 6236323-3 (Version None)
Quarter: 2009Q2

REPORT INFORMATION
  Report Type: 
  Country: None (occurrence: None)
  Receive Date: 20090619
  Receipt Date: 20090609
  Transmission Date: 20091009
  Serious: Yes (Death)
  Sender: FDA-Public Use
  Company Number: TR-AVENTIS-200915572GDDC

PATIENT
  Age: 70 Year
  Sex: Male

DRUGS (6)
  1. AFLIBERCEPT [Suspect]
     Indication: NON-SMALL CELL LUNG CANCER
     Route: 042
     Dates: start: 20090513, end: 20090513
  2. DOCETAXEL [Suspect]
     Indication: NON-SMALL CELL LUNG CANCER
     Route: 042
     Dates: start: 20090513, end: 20090513
  3. DILTIAZEM [Concomitant]
     Dates: start: 20060101
  4. IRBESARTAN [Concomitant]
     Dates: start: 20060101
  5. ECOPIRIN [Concomitant]
     Dates: start: 20060101
  6. CORTICOSTEROIDS [Concomitant]

REACTIONS (1)
  - SUPRAVENTRICULAR TACHYCARDIA [None]
